FAERS Safety Report 8003730-8 (Version None)
Quarter: 2011Q4

REPORT INFORMATION
  Report Type: 
  Country: None (occurrence: None)
  Receive Date: 20111222
  Receipt Date: 20111219
  Transmission Date: 20120403
  Serious: Yes (Other)
  Sender: FDA-Public Use
  Company Number: US-US-EMD SERONO, INC.-7039113

PATIENT
  Sex: Female
  Weight: 50 kg

DRUGS (2)
  1. REBIF [Suspect]
     Indication: MULTIPLE SCLEROSIS
     Route: 058
     Dates: start: 20060428, end: 20110128
  2. REBIF [Suspect]
     Route: 058
     Dates: start: 20110207

REACTIONS (7)
  - DRUG ADMINISTRATION ERROR [None]
  - LOCALISED INFECTION [None]
  - INJECTION SITE HAEMATOMA [None]
  - ULNAR NERVE INJURY [None]
  - INJECTION SITE PAIN [None]
  - MEDIAN NERVE INJURY [None]
  - INJECTION SITE ERYTHEMA [None]
